FAERS Safety Report 19893961 (Version 1)
Quarter: 2021Q3

REPORT INFORMATION
  Report Type: Spontaneous
  Country: US (occurrence: US)
  Receive Date: 20210929
  Receipt Date: 20210929
  Transmission Date: 20211014
  Serious: No
  Sender: FDA-Public Use
  Company Number: US-AMGEN-USASP2021147600

PATIENT
  Age: 72 Year
  Sex: Female

DRUGS (7)
  1. PAXIL [PIROXICAM] [Concomitant]
     Active Substance: PIROXICAM
  2. PROLIA [Suspect]
     Active Substance: DENOSUMAB
     Dosage: 60 MILLIGRAM, Q6MO
     Route: 065
     Dates: start: 201802
  3. XANAX [Concomitant]
     Active Substance: ALPRAZOLAM
     Dosage: UNK UNK, AS NECESSARY
  4. VITAMIN D [COLECALCIFEROL] [Concomitant]
     Active Substance: CHOLECALCIFEROL
  5. PROLIA [Suspect]
     Active Substance: DENOSUMAB
     Indication: OSTEOPOROSIS
     Dosage: 60 MILLIGRAM, Q6MO
     Route: 065
     Dates: start: 201512, end: 201706
  6. EFFEXOR [Concomitant]
     Active Substance: VENLAFAXINE HYDROCHLORIDE
  7. CALCIUM [Concomitant]
     Active Substance: CALCIUM

REACTIONS (1)
  - Lichen planus [Unknown]

NARRATIVE: CASE EVENT DATE: 2020
